FAERS Safety Report 5751857-3 (Version None)
Quarter: 2008Q2

REPORT INFORMATION
  Report Type: 
  Country: None (occurrence: None)
  Receive Date: 20080527
  Receipt Date: 20080512
  Transmission Date: 20081010
  Serious: Yes (Other)
  Sender: FDA-Public Use
  Company Number: 07-002440

PATIENT
  Age: 26 Year
  Sex: Female
  Weight: 26.7622 kg

DRUGS (7)
  1. LOESTRIN 24 FE [Suspect]
     Indication: MENSTRUAL CYCLE MANAGEMENT
     Dosage: 20/1000 UG, QD, ORAL
     Route: 048
     Dates: start: 20071001, end: 20071001
  2. YAZ [Concomitant]
  3. TOPROL-XL [Concomitant]
  4. COVERA-HS [Concomitant]
  5. ALBUTEROL /00139501/ (SALBUTAMOL) [Concomitant]
  6. VERELAN (VERAPAMIL HYDROCHLORIDE) CAPSULE [Concomitant]
  7. ACETAMINOPHEN [Concomitant]

REACTIONS (9)
  - CEREBROVASCULAR ACCIDENT [None]
  - GRIP STRENGTH DECREASED [None]
  - HYPOAESTHESIA FACIAL [None]
  - MIGRAINE WITH AURA [None]
  - MUSCULAR WEAKNESS [None]
  - OEDEMA PERIPHERAL [None]
  - PROTHROMBIN TIME SHORTENED [None]
  - SKIN DISCOLOURATION [None]
  - VISION BLURRED [None]
